FAERS Safety Report 7940026-4 (Version None)
Quarter: 2011Q4

REPORT INFORMATION
  Report Type: 
  Country: None (occurrence: None)
  Receive Date: 20111125
  Receipt Date: 20111122
  Transmission Date: 20120403
  Serious: No
  Sender: FDA-Public Use
  Company Number: US-PFIZER INC-2011286064

PATIENT
  Sex: Female
  Weight: 79.365 kg

DRUGS (8)
  1. FELODIPINE [Concomitant]
     Indication: HYPERTENSION
     Dosage: 2.5 MG, DAILY
  2. TIKOSYN [Suspect]
     Indication: ATRIAL FIBRILLATION
     Dosage: 500 MG, DAILY
     Route: 048
     Dates: start: 20111118, end: 20111120
  3. WARFARIN [Concomitant]
     Indication: ANTICOAGULANT THERAPY
     Dosage: 4 MG, DAILY
  4. TIKOSYN [Suspect]
     Dosage: 250 MG, DAILY
     Dates: start: 20111121
  5. PRILOSEC [Concomitant]
     Indication: GASTROOESOPHAGEAL REFLUX DISEASE
     Dosage: 20 MG, DAILY
  6. TOPAMAX [Concomitant]
     Indication: MIGRAINE
     Dosage: 100 MG, AS NEEDED
  7. ZOCOR [Concomitant]
     Indication: BLOOD CHOLESTEROL ABNORMAL
     Dosage: 20 MG, DAILY
  8. FUROSEMIDE [Concomitant]
     Indication: DIURETIC THERAPY
     Dosage: 40 MG, AS NEEDED

REACTIONS (2)
  - FEELING ABNORMAL [None]
  - DIZZINESS [None]
